FAERS Safety Report 12979537 (Version 3)
Quarter: 2017Q2

REPORT INFORMATION
  Report Type: Spontaneous
  Country: GB (occurrence: GB)
  Receive Date: 20161128
  Receipt Date: 20170525
  Transmission Date: 20170830
  Serious: Yes (Death, Hospitalization, Other)
  Sender: FDA-Public Use
  Company Number: GB-NOVOPROD-519979

PATIENT
  Age: 83 Year
  Sex: Female

DRUGS (3)
  1. NOVOMIX 30 FLEXPEN [Suspect]
     Active Substance: INSULIN ASPART
     Indication: TYPE 1 DIABETES MELLITUS
     Dosage: 32-36U QD (22U IN THE MORNING AND 10-14U IN THE EVENING)
     Route: 065
  2. NOVOMIX 30 FLEXPEN [Suspect]
     Active Substance: INSULIN ASPART
     Dosage: 26 U, QD (20U IN THE MORNING AND 6U IN THE EVENING)
     Route: 065
  3. WARFARIN [Concomitant]
     Active Substance: WARFARIN
     Dosage: UNK
     Route: 065

REACTIONS (10)
  - Hyperglycaemia [Recovered/Resolved]
  - Incorrect dose administered [Unknown]
  - Blood glucose fluctuation [Not Recovered/Not Resolved]
  - Pneumonia [Not Recovered/Not Resolved]
  - Blood glucose fluctuation [Unknown]
  - Confusional state [Unknown]
  - Death [Fatal]
  - Cerebrovascular accident [Not Recovered/Not Resolved]
  - Localised infection [Unknown]
  - Product preparation error [Unknown]

NARRATIVE: CASE EVENT DATE: 20170310
